FAERS Safety Report 5507872-8 (Version None)
Quarter: 2007Q4

REPORT INFORMATION
  Report Type: 
  Country: None (occurrence: None)
  Receive Date: 20071031
  Receipt Date: 20061018
  Transmission Date: 20080405
  Serious: Yes (Other)
  Sender: FDA-Public Use
  Company Number: 009173

PATIENT
  Age: 18 Year
  Sex: Female
  Weight: 89.8 kg

DRUGS (1)
  1. SEASONALE [Suspect]
     Indication: DYSMENORRHOEA
     Dosage: 1 TABLET, QD, ORAL
     Route: 048
     Dates: start: 20060223, end: 20061009

REACTIONS (2)
  - DEEP VEIN THROMBOSIS [None]
  - PAIN IN EXTREMITY [None]
